FAERS Safety Report 6316188-1 (Version None)
Quarter: 2009Q3

REPORT INFORMATION
  Report Type: 
  Country: None (occurrence: None)
  Receive Date: 20090820
  Receipt Date: 20090817
  Transmission Date: 20100115
  Serious: Yes (Hospitalization)
  Sender: FDA-Public Use
  Company Number: PH-EISAI INC.-E2090-00815-SPO-PH

PATIENT
  Age: 55 Year
  Sex: Female
  Weight: 50 kg

DRUGS (1)
  1. ZONEGRAN [Suspect]
     Route: 048
     Dates: start: 20090702, end: 20090802

REACTIONS (1)
  - RASH MACULO-PAPULAR [None]
